FAERS Safety Report 5404394-X (Version None)
Quarter: 2007Q3

REPORT INFORMATION
  Report Type: 
  Country: None (occurrence: None)
  Receive Date: 20070802
  Receipt Date: 20070723
  Transmission Date: 20080115
  Serious: Yes (Other)
  Sender: FDA-Public Use
  Company Number: US-PFIZER INC-2007062669

PATIENT
  Sex: Female
  Weight: 90.909 kg

DRUGS (10)
  1. LIPITOR [Suspect]
  2. BENADRYL [Concomitant]
  3. TYLENOL (CAPLET) [Concomitant]
  4. ACTOS [Concomitant]
  5. HYZAAR [Concomitant]
  6. PROZAC [Concomitant]
  7. ASPIRIN [Concomitant]
  8. ATENOLOL [Concomitant]
  9. CHONDROITIN/GLUCOSAMINE [Concomitant]
  10. SOY ISOFLAVONES [Concomitant]

REACTIONS (5)
  - FATIGUE [None]
  - HEADACHE [None]
  - MUSCULOSKELETAL DISCOMFORT [None]
  - NECK PAIN [None]
  - PAIN IN EXTREMITY [None]
